FAERS Safety Report 12365751 (Version 1)
Quarter: 2016Q2

REPORT INFORMATION
  Report Type: Spontaneous
  Country: US (occurrence: US)
  Receive Date: 20160513
  Receipt Date: 20160513
  Transmission Date: 20160815
  Serious: No
  Sender: FDA-Public Use
  Company Number: US-WOCKHARDT USA, LLC-1052150

PATIENT
  Age: 76 Year
  Sex: Male

DRUGS (4)
  1. BENICAR [Concomitant]
     Active Substance: OLMESARTAN MEDOXOMIL
  2. LOZOL [Concomitant]
     Active Substance: INDAPAMIDE
  3. ATENOLOL. [Concomitant]
     Active Substance: ATENOLOL
  4. LEVOFLOXACIN. [Suspect]
     Active Substance: LEVOFLOXACIN
     Indication: UPPER RESPIRATORY TRACT INFECTION

REACTIONS (6)
  - Cough [None]
  - Tendon disorder [None]
  - Dyspnoea [None]
  - Anxiety [None]
  - Arthritis [Not Recovered/Not Resolved]
  - Musculoskeletal pain [None]

NARRATIVE: CASE EVENT DATE: 2003
